FAERS Safety Report 13523232 (Version 2)
Quarter: 2017Q3

REPORT INFORMATION
  Report Type: Spontaneous
  Country: US (occurrence: US)
  Receive Date: 20170508
  Receipt Date: 20170810
  Transmission Date: 20171127
  Serious: No
  Sender: FDA-Public Use
  Company Number: US-VIFOR (INTERNATIONAL) INC.-VIT-2017-01067

PATIENT
  Age: 70 Year
  Sex: Female

DRUGS (20)
  1. VELTASSA [Suspect]
     Active Substance: PATIROMER
     Indication: HYPERKALAEMIA
     Route: 048
     Dates: start: 20161201
  2. NORVAST [Concomitant]
  3. CELEBREX [Concomitant]
     Active Substance: CELECOXIB
  4. PHENAZOPYRIDINE. [Concomitant]
     Active Substance: PHENAZOPYRIDINE
  5. NORVASC [Concomitant]
     Active Substance: AMLODIPINE BESYLATE
  6. MVI [Concomitant]
     Active Substance: VITAMINS
  7. NITROSTAT [Concomitant]
     Active Substance: NITROGLYCERIN
  8. PENICILLINS [Suspect]
     Active Substance: PENICILLIN
  9. ENALAPRIL [Concomitant]
     Active Substance: ENALAPRIL
  10. XANAX [Concomitant]
     Active Substance: ALPRAZOLAM
  11. PRILOSEC [Concomitant]
     Active Substance: OMEPRAZOLE MAGNESIUM
  12. LYRICA [Concomitant]
     Active Substance: PREGABALIN
  13. SYNTHROID [Concomitant]
     Active Substance: LEVOTHYROXINE SODIUM
  14. ELIDEL [Concomitant]
     Active Substance: PIMECROLIMUS
  15. NOVOLIN N [Concomitant]
     Active Substance: INSULIN HUMAN
  16. ZEGERID [Concomitant]
     Active Substance: OMEPRAZOLE\SODIUM BICARBONATE
  17. CELEXA [Concomitant]
     Active Substance: CITALOPRAM HYDROBROMIDE
  18. PLAVIX [Concomitant]
     Active Substance: CLOPIDOGREL BISULFATE
  19. PRAVASTATIN. [Concomitant]
     Active Substance: PRAVASTATIN
  20. TRAMADOL. [Concomitant]
     Active Substance: TRAMADOL

REACTIONS (4)
  - Blister [Not Recovered/Not Resolved]
  - Lip swelling [Not Recovered/Not Resolved]
  - Drug dose omission [Unknown]
  - Oral pain [Not Recovered/Not Resolved]

NARRATIVE: CASE EVENT DATE: 20170508
